FAERS Safety Report 20610040 (Version 3)
Quarter: 2022Q1

REPORT INFORMATION
  Report Type: Spontaneous
  Country: FI (occurrence: FI)
  Receive Date: 20220318
  Receipt Date: 20220331
  Transmission Date: 20220423
  Serious: Yes (Other)
  Sender: FDA-Public Use
  Company Number: FI-MYLANLABS-2022M1002923

PATIENT
  Age: 86 Year
  Sex: Female
  Weight: 96 kg

DRUGS (2)
  1. ALENDRONATE SODIUM [Suspect]
     Active Substance: ALENDRONATE SODIUM
     Indication: Spinal fracture
     Dosage: 1 TABLET ONCE A WEEK
     Route: 048
     Dates: end: 20120823
  2. CALCIUM CARBONATE\CHOLECALCIFEROL [Suspect]
     Active Substance: CALCIUM CARBONATE\CHOLECALCIFEROL
     Indication: Spinal fracture
     Dosage: UNK

REACTIONS (3)
  - Spinal fracture [Unknown]
  - Femur fracture [Recovered/Resolved]
  - Product use in unapproved indication [Unknown]

NARRATIVE: CASE EVENT DATE: 20120101
